FAERS Safety Report 24534088 (Version 2)
Quarter: 2024Q4

REPORT INFORMATION
  Report Type: Report from Study
  Country: BR (occurrence: BR)
  Receive Date: 20241022
  Receipt Date: 20241028
  Transmission Date: 20250115
  Serious: Yes (Other)
  Sender: NOVARTIS
  Company Number: BR-002147023-NVSC2024BR204602

PATIENT
  Sex: Female

DRUGS (2)
  1. RIBOCICLIB [Suspect]
     Active Substance: RIBOCICLIB
     Indication: Product used for unknown indication
     Dosage: UNK
     Route: 065
  2. RIBOCICLIB [Suspect]
     Active Substance: RIBOCICLIB
     Dosage: UNK (A NEW CYCLE HAS BEGUN, TODAY 22-OCT)
     Route: 065

REACTIONS (11)
  - Choking [Unknown]
  - Cough [Unknown]
  - Scratch [Unknown]
  - Dyspnoea [Unknown]
  - Dysphonia [Unknown]
  - Dry skin [Recovered/Resolved]
  - Pruritus [Recovered/Resolved]
  - Rash macular [Recovered/Resolved]
  - Nausea [Recovered/Resolved]
  - Malaise [Recovered/Resolved]
  - Skin irritation [Recovered/Resolved]
